FAERS Safety Report 13056627 (Version 1)
Quarter: 2016Q4

REPORT INFORMATION
  Report Type: Spontaneous
  Country: US (occurrence: US)
  Receive Date: 20161222
  Receipt Date: 20161222
  Transmission Date: 20170207
  Serious: Yes (Hospitalization, Other)
  Sender: FDA-Public Use
  Company Number: US-ELI_LILLY_AND_COMPANY-US201612006568

PATIENT
  Sex: Male

DRUGS (2)
  1. HUMALOG [Suspect]
     Active Substance: INSULIN LISPRO
     Indication: TYPE 1 DIABETES MELLITUS
     Dosage: 3, 4 OR 5 TIMES A DAY, ON SLIDING SCALE
     Route: 065
     Dates: start: 1964
  2. HUMALOG [Suspect]
     Active Substance: INSULIN LISPRO
     Dosage: 3, 4 OR 5 TIMES A DAY, ON SLIDING SCALE
     Route: 065

REACTIONS (3)
  - Blood glucose increased [Unknown]
  - Incorrect dose administered [Unknown]
  - Diabetic coma [Unknown]

NARRATIVE: CASE EVENT DATE: 2006
